FAERS Safety Report 4599117-0 (Version None)
Quarter: 2005Q1

REPORT INFORMATION
  Report Type: 
  Country: None (occurrence: None)
  Receive Date: 20050302
  Receipt Date: 20050224
  Transmission Date: 20050727
  Serious: Yes (Hospitalization)
  Sender: FDA-Public Use
  Company Number: SP00404

PATIENT
  Age: 28 Year
  Sex: Male

DRUGS (1)
  1. COLAZIDE (CAPSULES) [Suspect]
     Indication: COLITIS ULCERATIVE
     Dosage: 4.5G/DAILY, ORAL
     Route: 048
     Dates: end: 20000721

REACTIONS (3)
  - CHEST DISCOMFORT [None]
  - MYOCARDITIS [None]
  - UPPER RESPIRATORY TRACT INFECTION [None]
